FAERS Safety Report 8603693-8 (Version None)
Quarter: 2012Q3

REPORT INFORMATION
  Report Type: 
  Country: None (occurrence: None)
  Receive Date: 20120817
  Receipt Date: 20120808
  Transmission Date: 20120928
  Serious: Yes (Other)
  Sender: FDA-Public Use
  Company Number: US-ASTRAZENECA-2012SE56222

PATIENT
  Age: 78 Year
  Sex: Female

DRUGS (1)
  1. SYMBICORT [Suspect]
     Dosage: UNKNOWN
     Route: 055

REACTIONS (2)
  - VISUAL IMPAIRMENT [None]
  - CEREBROVASCULAR ACCIDENT [None]
